FAERS Safety Report 7437241-5 (Version None)
Quarter: 2011Q2

REPORT INFORMATION
  Report Type: 
  Country: None (occurrence: None)
  Receive Date: 20110426
  Receipt Date: 20110414
  Transmission Date: 20111010
  Serious: Yes (Death, Hospitalization, Other)
  Sender: FDA-Public Use
  Company Number: US-BRISTOL-MYERS SQUIBB COMPANY-15689433

PATIENT
  Age: 40 Year
  Sex: Female

DRUGS (5)
  1. SODIUM BICARBONATE [Concomitant]
  2. RISPERIDONE [Suspect]
  3. SERTRALINE [Suspect]
  4. HYDROCHLOROTHIAZIDE [Suspect]
  5. GLUCOVANCE [Suspect]

REACTIONS (3)
  - HYPOGLYCAEMIA [None]
  - MULTIPLE DRUG OVERDOSE [None]
  - LACTIC ACIDOSIS [None]
